FAERS Safety Report 13135996 (Version 1)
Quarter: 2017Q1

REPORT INFORMATION
  Report Type: Spontaneous
  Country: US (occurrence: US)
  Receive Date: 20170120
  Receipt Date: 20170120
  Transmission Date: 20170428
  Serious: Yes (Other)
  Sender: FDA-Public Use
  Company Number: US-BAUSCH-BL-2017-001357

PATIENT
  Age: 66 Year
  Sex: Male

DRUGS (2)
  1. 5-FLUOROURACIL [Suspect]
     Active Substance: FLUOROURACIL
     Indication: ADENOCARCINOMA
     Route: 065
  2. 5-FLUOROURACIL [Suspect]
     Active Substance: FLUOROURACIL
     Indication: DISEASE PROGRESSION

REACTIONS (1)
  - Arteriospasm coronary [Recovered/Resolved]
